FAERS Safety Report 19932819 (Version 1)
Quarter: 2021Q4

REPORT INFORMATION
  Report Type: Spontaneous
  Country: US (occurrence: US)
  Receive Date: 20211007
  Receipt Date: 20211007
  Transmission Date: 20220303
  Serious: Yes (Other)
  Sender: FDA-Public Use
  Company Number: None

PATIENT
  Age: 75 Year
  Sex: Male

DRUGS (12)
  1. ABIRATERONE. [Suspect]
     Active Substance: ABIRATERONE ACETATE
     Indication: Prostate cancer
     Route: 048
     Dates: start: 20190824
  2. LOSARTAN [Concomitant]
     Active Substance: LOSARTAN
  3. VITAMIN D [Concomitant]
     Active Substance: VITAMIN D NOS
  4. PROCHLORPERAZINE [Concomitant]
     Active Substance: PROCHLORPERAZINE
  5. ONDANSETRON [Concomitant]
     Active Substance: ONDANSETRON
  6. PANTOPRAZOLE [Concomitant]
     Active Substance: PANTOPRAZOLE
  7. PREDNISONE [Concomitant]
     Active Substance: PREDNISONE
  8. DOCETAXEL [Concomitant]
     Active Substance: DOCETAXEL
  9. HEPARIN [Concomitant]
     Active Substance: HEPARIN SODIUM
  10. LUPRON [Concomitant]
     Active Substance: LEUPROLIDE ACETATE
  11. XGEVA [Concomitant]
     Active Substance: DENOSUMAB
  12. ELIQUIS [Concomitant]
     Active Substance: APIXABAN

REACTIONS (1)
  - Mood swings [None]

NARRATIVE: CASE EVENT DATE: 20211007
